FAERS Safety Report 14857839 (Version 1)
Quarter: 2018Q2

REPORT INFORMATION
  Report Type: Spontaneous
  Country: FR (occurrence: FR)
  Receive Date: 20180508
  Receipt Date: 20180508
  Transmission Date: 20180711
  Serious: Yes (Other)
  Sender: FDA-Public Use
  Company Number: FR-MERCK KGAA-2047340

PATIENT
  Age: 65 Year
  Sex: Male

DRUGS (1)
  1. NOVOTHYROX [Suspect]
     Active Substance: LEVOTHYROXINE SODIUM
     Indication: HYPOTHYROIDISM

REACTIONS (16)
  - Hypertensive crisis [Recovered/Resolved]
  - Fatigue [Recovered/Resolved]
  - Emotional distress [Recovered/Resolved]
  - Blood thyroid stimulating hormone increased [Recovered/Resolved]
  - Apathy [Recovered/Resolved]
  - Loss of personal independence in daily activities [Recovered/Resolved]
  - Sleep disorder [Recovered/Resolved]
  - Anxiety [Recovered/Resolved]
  - Social avoidant behaviour [Recovered/Resolved]
  - Mental fatigue [Recovered/Resolved]
  - Somnolence [Recovered/Resolved]
  - Hyperhidrosis [Recovered/Resolved]
  - Fear of death [Recovered/Resolved]
  - Emotional disorder [Recovered/Resolved]
  - Arrhythmia [Recovered/Resolved]
  - Hot flush [Recovered/Resolved]

NARRATIVE: CASE EVENT DATE: 2017
